FAERS Safety Report 22148970 (Version 1)
Quarter: 2023Q1

REPORT INFORMATION
  Report Type: Spontaneous
  Country: GR (occurrence: GR)
  Receive Date: 20230328
  Receipt Date: 20230328
  Transmission Date: 20230417
  Serious: Yes (Other)
  Sender: FDA-Public Use
  Company Number: GR-GILEAD-2023-0621407

PATIENT
  Age: 66 Year
  Sex: Female

DRUGS (1)
  1. TRODELVY [Suspect]
     Active Substance: SACITUZUMAB GOVITECAN-HZIY
     Indication: Breast cancer metastatic
     Dosage: UNK
     Route: 065
     Dates: start: 202208, end: 20230222

REACTIONS (4)
  - Haemolytic uraemic syndrome [Unknown]
  - Pneumonitis [Unknown]
  - Pericardial effusion [Unknown]
  - Serositis [Unknown]

NARRATIVE: CASE EVENT DATE: 20230301
